FAERS Safety Report 5637204-6 (Version None)
Quarter: 2008Q1

REPORT INFORMATION
  Report Type: 
  Country: None (occurrence: None)
  Receive Date: 20080225
  Receipt Date: 20080212
  Transmission Date: 20080703
  Serious: Yes (Disabling)
  Sender: FDA-Public Use
  Company Number: FR-AVENTIS-200810548FR

PATIENT
  Age: 41 Year
  Sex: Male

DRUGS (13)
  1. COLIMYCINE                         /00013202/ [Suspect]
     Route: 055
     Dates: start: 20070925
  2. LOVENOX [Suspect]
     Indication: PROPHYLAXIS
     Route: 058
     Dates: start: 20070925
  3. SOLUPRED                           /00016201/ [Suspect]
     Route: 048
     Dates: start: 20070924
  4. NEORAL [Suspect]
     Route: 048
     Dates: start: 20070701, end: 20071002
  5. CREON [Suspect]
     Indication: PANCREATIC INSUFFICIENCY
     Route: 048
     Dates: start: 20070925
  6. NEXIUM [Suspect]
     Route: 048
     Dates: start: 20070925
  7. MOVICOL                            /01053601/ [Suspect]
     Indication: CONSTIPATION
     Route: 048
     Dates: start: 20070925
  8. ROVALCYTE [Suspect]
     Route: 048
     Dates: start: 20070924, end: 20071105
  9. KEPPRA [Suspect]
     Route: 048
     Dates: start: 20070730
  10. OXACILLIN [Suspect]
     Route: 048
     Dates: start: 20070919, end: 20071107
  11. STILNOX                            /00914901/ [Concomitant]
     Indication: INSOMNIA
     Route: 048
  12. ATARAX                             /00058402/ [Concomitant]
     Indication: ANXIETY
     Route: 048
  13. DEROXAT [Concomitant]
     Indication: DEPRESSION
     Route: 048

REACTIONS (1)
  - OPTIC NEURITIS [None]
